FAERS Safety Report 11220389 (Version 1)
Quarter: 2015Q2

REPORT INFORMATION
  Report Type: Spontaneous
  Country: US (occurrence: None)
  Receive Date: 20150625
  Receipt Date: 20150625
  Transmission Date: 20150821
  Serious: No
  Sender: FDA-Public Use
  Company Number: None

PATIENT
  Age: 57 Year
  Sex: Female

DRUGS (11)
  1. LORAZEPAM. [Concomitant]
     Active Substance: LORAZEPAM
  2. HYDROMORPHON [Concomitant]
     Active Substance: HYDROMORPHONE
  3. MORPHINE [Concomitant]
     Active Substance: MORPHINE
  4. IBU [Concomitant]
     Active Substance: IBUPROFEN
  5. OMEPRAZOLE. [Concomitant]
     Active Substance: OMEPRAZOLE
  6. AFINITOR [Suspect]
     Active Substance: EVEROLIMUS
     Indication: BREAST CANCER
     Route: 048
     Dates: start: 20150610
  7. HYDROCO/APAP [Concomitant]
     Active Substance: ACETAMINOPHEN\HYDROCODONE
  8. VIRTUSSIN [Concomitant]
  9. EXEMESTANE 25MG GRE [Suspect]
     Active Substance: EXEMESTANE
     Indication: BREAST CANCER
     Route: 048
     Dates: start: 20150610
  10. AMOXICILLIN. [Concomitant]
     Active Substance: AMOXICILLIN
  11. PENICILLIN [Concomitant]
     Active Substance: PENICILLIN

REACTIONS (1)
  - Oral pain [None]

NARRATIVE: CASE EVENT DATE: 20150611
